FAERS Safety Report 20332615 (Version 4)
Quarter: 2023Q2

REPORT INFORMATION
  Report Type: Spontaneous
  Country: US (occurrence: US)
  Receive Date: 20220113
  Receipt Date: 20230403
  Transmission Date: 20230721
  Serious: No
  Sender: FDA-Public Use
  Company Number: US-INCYTE CORPORATION-2022IN000176

PATIENT

DRUGS (3)
  1. JAKAFI [Suspect]
     Active Substance: RUXOLITINIB
     Indication: White blood cell count increased
     Dosage: 20 MILLIGRAM, BID
     Route: 048
     Dates: start: 20190611
  2. JAKAFI [Suspect]
     Active Substance: RUXOLITINIB
     Indication: Polycythaemia vera
     Dosage: 20 MILLIGRAM, BID
     Route: 048
     Dates: start: 20190614
  3. JAKAFI [Suspect]
     Active Substance: RUXOLITINIB
     Dosage: 20 MILLIGRAM, BID
     Route: 048
     Dates: start: 202011

REACTIONS (4)
  - Memory impairment [Unknown]
  - Pain [Unknown]
  - Hepatic enzyme increased [Unknown]
  - Muscle spasms [Unknown]
